FAERS Safety Report 6130802-5 (Version None)
Quarter: 2009Q1

REPORT INFORMATION
  Report Type: 
  Country: None (occurrence: None)
  Receive Date: 20090323
  Receipt Date: 20090312
  Transmission Date: 20090719
  Serious: Yes (Life-Threatening, Congenital Anomaly)
  Sender: FDA-Public Use
  Company Number: GXKR2009GB03271

PATIENT
  Age: 3 Year
  Sex: Female

DRUGS (3)
  1. MIRTAZAPINE [Suspect]
     Dosage: TRANSPLACENTAL
     Route: 064
  2. CARBAMAZEPINE [Concomitant]
     Dosage: TRANSPLACENTAL
     Route: 064
  3. OXAZEPAM [Suspect]
     Dosage: TRANSPLACENTAL
     Route: 064

REACTIONS (3)
  - HYDROCEPHALUS [None]
  - MATERNAL DRUGS AFFECTING FOETUS [None]
  - MEDULLOBLASTOMA [None]
